FAERS Safety Report 9843225 (Version 1)
Quarter: 2014Q1

REPORT INFORMATION
  Report Type: Report from Study
  Country: CA (occurrence: CA)
  Receive Date: 20140124
  Receipt Date: 20140124
  Transmission Date: 20141002
  Serious: Yes (Other)
  Sender: FDA-Public Use
  Company Number: CA-ABBVIE-14P-028-1191935-00

PATIENT
  Sex: Male
  Weight: 83.99 kg

DRUGS (2)
  1. HUMIRA [Suspect]
     Indication: CROHN^S DISEASE
     Dosage: 1
     Route: 058
     Dates: start: 20120224, end: 2013
  2. HUMIRA [Suspect]
     Route: 058
     Dates: start: 201311

REACTIONS (4)
  - Abdominal adhesions [Recovered/Resolved]
  - Gastrointestinal inflammation [Recovered/Resolved]
  - Post procedural complication [Recovered/Resolved]
  - Tremor [Unknown]
